FAERS Safety Report 21924513 (Version 1)
Quarter: 2023Q1

REPORT INFORMATION
  Report Type: Other
  Country: US (occurrence: US)
  Receive Date: 20230130
  Receipt Date: 20230130
  Transmission Date: 20230417
  Serious: Yes (Death)
  Sender: FDA-Public Use
  Company Number: US-INTERCEPT-PM2023000150

PATIENT
  Age: 84 Year
  Sex: Male

DRUGS (16)
  1. OCALIVA [Suspect]
     Active Substance: OBETICHOLIC ACID
     Indication: Primary biliary cholangitis
     Dosage: 5 MILLIGRAM, QD
     Route: 048
     Dates: start: 20191029
  2. URSODIOL [Concomitant]
     Active Substance: URSODIOL
     Dosage: UNK
  3. REPATHA [Concomitant]
     Active Substance: EVOLOCUMAB
     Dosage: UNK
  4. LUPRON DEPOT-PED [Concomitant]
     Active Substance: LEUPROLIDE ACETATE
     Dosage: UNK
  5. NORVASC [Concomitant]
     Active Substance: AMLODIPINE BESYLATE
     Dosage: UNK
  6. ZETIA [Concomitant]
     Active Substance: EZETIMIBE
     Dosage: UNK
  7. IMODIUM [Concomitant]
     Active Substance: LOPERAMIDE HYDROCHLORIDE
     Dosage: UNK
  8. ALLEGRA ALLERGY [Concomitant]
     Active Substance: FEXOFENADINE HYDROCHLORIDE
     Dosage: UNK
  9. METAMUCIL THERAPY FOR REGULARITY [Concomitant]
     Active Substance: PSYLLIUM HUSK
     Dosage: UNK
  10. ISOSORBIDE DINITRATE [Concomitant]
     Active Substance: ISOSORBIDE DINITRATE
     Dosage: UNK
  11. MAXZIDE [Concomitant]
     Active Substance: HYDROCHLOROTHIAZIDE\TRIAMTERENE
     Dosage: UNK
  12. VITAMIN D3 [Concomitant]
     Active Substance: CHOLECALCIFEROL
     Dosage: UNK
  13. PRILOSEC [Concomitant]
     Active Substance: OMEPRAZOLE MAGNESIUM
     Dosage: UNK
  14. CLONIDINE HYDROCHLORIDE [Concomitant]
     Active Substance: CLONIDINE HYDROCHLORIDE
     Dosage: UNK
  15. ASPIRIN [Concomitant]
     Active Substance: ASPIRIN
  16. DIOVAN [Concomitant]
     Active Substance: VALSARTAN

REACTIONS (1)
  - Death [Fatal]

NARRATIVE: CASE EVENT DATE: 20221209
